FAERS Safety Report 4365174-X (Version None)
Quarter: 2004Q2

REPORT INFORMATION
  Report Type: 
  Country: None (occurrence: None)
  Receive Date: 20040525
  Receipt Date: 20040412
  Transmission Date: 20050107
  Serious: Yes (Other)
  Sender: FDA-Public Use
  Company Number: PHEH2004US01802

PATIENT
  Age: 44 Year
  Sex: Female

DRUGS (4)
  1. ZELNORM [Suspect]
     Indication: CONSTIPATION
     Dosage: 6 MG, BID, UNK
     Dates: start: 20040210, end: 20040220
  2. LITHIUM (LITHIUM) [Concomitant]
  3. CELEXA [Concomitant]
  4. WELLBUTRIN (BUPROPION HYDRODHCLORIDE) [Concomitant]

REACTIONS (5)
  - ASTHENIA [None]
  - CRYING [None]
  - DEPRESSED MOOD [None]
  - DIZZINESS [None]
  - HYPOTENSION [None]
